FAERS Safety Report 10228763 (Version 1)
Quarter: 2014Q2

REPORT INFORMATION
  Report Type: Spontaneous
  Country: US (occurrence: US)
  Receive Date: 20140610
  Receipt Date: 20140610
  Transmission Date: 20141212
  Serious: Yes (Hospitalization)
  Sender: FDA-Public Use
  Company Number: US-GILEAD-2014-0104784

PATIENT
  Sex: Male

DRUGS (2)
  1. LETAIRIS [Suspect]
     Indication: PRODUCT USED FOR UNKNOWN INDICATION
     Dosage: 5 MG, QD
     Route: 065
     Dates: start: 20110506
  2. ADCIRCA [Concomitant]

REACTIONS (5)
  - Oedema peripheral [Not Recovered/Not Resolved]
  - Neck pain [Unknown]
  - Spinal pain [Unknown]
  - Bone pain [Unknown]
  - Dyspnoea [Unknown]
